FAERS Safety Report 14582710 (Version 1)
Quarter: 2018Q1

REPORT INFORMATION
  Report Type: Spontaneous
  Country: PL (occurrence: PL)
  Receive Date: 20180228
  Receipt Date: 20180228
  Transmission Date: 20180509
  Serious: Yes (Death, Hospitalization, Other)
  Sender: FDA-Public Use
  Company Number: PL-IMPAX LABORATORIES, INC-2018-IPXL-00561

PATIENT
  Sex: Male

DRUGS (6)
  1. SYNACTHEN /00137802/ [Suspect]
     Active Substance: COSYNTROPIN
     Indication: EPILEPSY
     Dosage: UNK
     Route: 065
  2. CLOBAZAM [Suspect]
     Active Substance: CLOBAZAM
     Indication: EPILEPSY
     Dosage: UNK
     Route: 065
  3. DIVALPROEX SODIUM ER [Suspect]
     Active Substance: DIVALPROEX SODIUM
     Indication: SEIZURE
     Dosage: UNK
     Route: 065
  4. LAMOTRIGINE ODT [Suspect]
     Active Substance: LAMOTRIGINE
     Indication: EPILEPSY
     Dosage: UNK
     Route: 065
  5. TOPIRAMATE. [Suspect]
     Active Substance: TOPIRAMATE
     Indication: EPILEPSY
     Dosage: UNK
     Route: 065
  6. VIGABATRINE [Suspect]
     Active Substance: VIGABATRIN
     Indication: EPILEPSY
     Dosage: UNK
     Route: 065

REACTIONS (8)
  - Central nervous system lesion [None]
  - Circulatory collapse [Recovering/Resolving]
  - Congestive cardiomyopathy [Recovering/Resolving]
  - Blood lactic acid increased [Recovering/Resolving]
  - Hypertransaminasaemia [Recovered/Resolved]
  - Multiple organ dysfunction syndrome [Fatal]
  - Paralysis [Unknown]
  - Mitochondrial cytopathy [None]
